FAERS Safety Report 11146012 (Version 1)
Quarter: 2015Q2

REPORT INFORMATION
  Report Type: Spontaneous
  Country: US (occurrence: US)
  Receive Date: 20150528
  Receipt Date: 20150528
  Transmission Date: 20150821
  Serious: Yes (Other)
  Sender: FDA-Public Use
  Company Number: US-GLAXOSMITHKLINE-US2015GSK071585

PATIENT
  Age: 25 Year
  Sex: Female

DRUGS (1)
  1. ALLI [Suspect]
     Active Substance: ORLISTAT
     Indication: PRODUCT USED FOR UNKNOWN INDICATION
     Dosage: 1 CAPSULE PER MEAL 3 TIMES A DAY PO
     Route: 048

REACTIONS (6)
  - Pruritus [Unknown]
  - Rash [Unknown]
  - Insomnia [Unknown]
  - Anxiety [Unknown]
  - Chest discomfort [Unknown]
  - Dyspnoea [Unknown]
